FAERS Safety Report 6107282-9 (Version None)
Quarter: 2009Q1

REPORT INFORMATION
  Report Type: 
  Country: None (occurrence: None)
  Receive Date: 20090305
  Receipt Date: 20090225
  Transmission Date: 20090719
  Serious: Yes (Hospitalization)
  Sender: FDA-Public Use
  Company Number: WAES 0812USA04033

PATIENT
  Age: 70 Year
  Sex: Female

DRUGS (3)
  1. FOSAMAX [Suspect]
     Indication: OSTEOPOROSIS
     Dosage: 35 MG/WKY, PO
     Route: 048
     Dates: start: 20071209, end: 20081201
  2. TAB TASUOMIN (TAMOXIFEN CITRATE) [Suspect]
     Indication: BREAST CANCER
     Dosage: 20 MG/DAILY, PO
     Route: 048
     Dates: start: 20070823, end: 20081201
  3. ALFAROL [Concomitant]

REACTIONS (4)
  - ANAEMIA [None]
  - BLAST CELLS PRESENT [None]
  - MEAN CELL VOLUME INCREASED [None]
  - WHITE BLOOD CELL COUNT DECREASED [None]
